FAERS Safety Report 5484540-2 (Version None)
Quarter: 2007Q4

REPORT INFORMATION
  Report Type: 
  Country: None (occurrence: None)
  Receive Date: 20071012
  Receipt Date: 20071002
  Transmission Date: 20080405
  Serious: Yes (Other)
  Sender: FDA-Public Use
  Company Number: US-PFIZER INC-2007083379

PATIENT
  Sex: Female
  Weight: 83.5 kg

DRUGS (7)
  1. CHANTIX [Suspect]
     Indication: EX-SMOKER
     Route: 048
  2. LAMICTAL [Concomitant]
  3. ZOLOFT [Concomitant]
  4. ZYPREXA [Concomitant]
  5. HYZAAR [Concomitant]
  6. LEVOXYL [Concomitant]
  7. POTASSIUM CHLORIDE [Concomitant]

REACTIONS (6)
  - DEPRESSION [None]
  - DIARRHOEA [None]
  - DYSSTASIA [None]
  - FEELING ABNORMAL [None]
  - GASTROINTESTINAL PAIN [None]
  - NAUSEA [None]
